FAERS Safety Report 21624340 (Version 1)
Quarter: 2022Q4

REPORT INFORMATION
  Report Type: Spontaneous
  Country: US (occurrence: US)
  Receive Date: 20221121
  Receipt Date: 20221121
  Transmission Date: 20230112
  Serious: Yes (Other)
  Sender: FDA-Public Use
  Company Number: US-BRACCO-2021US05258

PATIENT
  Age: 49 Year
  Sex: Male

DRUGS (6)
  1. LUMASON [Suspect]
     Active Substance: SULFUR HEXAFLUORIDE
     Indication: Echocardiogram
     Dosage: UNK
     Dates: start: 20211207, end: 20211207
  2. LUMASON [Suspect]
     Active Substance: SULFUR HEXAFLUORIDE
     Indication: Echocardiogram
     Dosage: UNK
     Dates: start: 20211207, end: 20211207
  3. LUMASON [Suspect]
     Active Substance: SULFUR HEXAFLUORIDE
     Indication: Echocardiogram
     Dosage: UNK
     Dates: start: 20211207, end: 20211207
  4. METOPROLOL [Concomitant]
     Active Substance: METOPROLOL
     Dosage: UNK
  5. VALSARTAN [Concomitant]
     Active Substance: VALSARTAN
     Dosage: UNK
  6. CRESTOR [Concomitant]
     Active Substance: ROSUVASTATIN CALCIUM
     Dosage: UNKNOWN

REACTIONS (5)
  - Seizure [Recovering/Resolving]
  - Oral discomfort [Recovering/Resolving]
  - Urticaria [Recovering/Resolving]
  - Hot flush [Recovering/Resolving]
  - Urinary incontinence [Recovering/Resolving]

NARRATIVE: CASE EVENT DATE: 20211207
